FAERS Safety Report 6570840-1 (Version None)
Quarter: 2010Q1

REPORT INFORMATION
  Report Type: 
  Country: None (occurrence: None)
  Receive Date: 20100202
  Receipt Date: 20100202
  Transmission Date: 20100710
  Serious: Yes (Hospitalization)
  Sender: FDA-Public Use
  Company Number: None

PATIENT
  Sex: Female
  Weight: 57.1532 kg

DRUGS (2)
  1. YASMIN 3MG BAYER CORPORATION [Suspect]
     Indication: CONTRACEPTION
     Dosage: 1 PILL 1X PER DAY PO
     Route: 048
     Dates: start: 20001105, end: 20100129
  2. OCELLA .03MG BARR [Suspect]
     Indication: MENSTRUATION IRREGULAR

REACTIONS (2)
  - NEPHROLITHIASIS [None]
  - PRODUCT QUALITY ISSUE [None]
